FAERS Safety Report 18263474 (Version 1)
Quarter: 2020Q3

REPORT INFORMATION
  Report Type: Spontaneous
  Country: CA (occurrence: CA)
  Receive Date: 20200914
  Receipt Date: 20200914
  Transmission Date: 20201103
  Serious: Yes (Life-Threatening)
  Sender: FDA-Public Use
  Company Number: CA-BAXTER-2020BAX018426

PATIENT
  Age: 1 Year
  Sex: Male

DRUGS (2)
  1. TRAVASOL [Suspect]
     Active Substance: ALANINE\ARGININE\GLYCINE\HISTIDINE\ISOLEUCINE\LEUCINE\LYSINE HYDROCHLORIDE\METHIONINE\PHENYLALANINE\PROLINE\SERINE\THREONINE\TRYPTOPHAN\TYROSINE\VALINE
     Indication: PRODUCT USED FOR UNKNOWN INDICATION
     Dosage: DOSAGE FORM: SOLUTION INTRAVENOUS
     Route: 041
  2. GRANULOCYTE COLONY STIMULATING FACTOR [Concomitant]
     Active Substance: GRANULOCYTE COLONY-STIMULATING FACTOR NOS
     Indication: PRODUCT USED FOR UNKNOWN INDICATION
     Dosage: DOSAGE FORM: NOT SPECIFIED
     Route: 065

REACTIONS (11)
  - Body temperature abnormal [Unknown]
  - Depressed level of consciousness [Unknown]
  - Pulse abnormal [Unknown]
  - Rash papular [Unknown]
  - Capillary nail refill test abnormal [Unknown]
  - Cyanosis [Unknown]
  - Rash erythematous [Unknown]
  - Vomiting [Unknown]
  - Lethargy [Unknown]
  - Oxygen saturation abnormal [Unknown]
  - Rash [Unknown]
